FAERS Safety Report 9606093 (Version 1)
Quarter: 2013Q4

REPORT INFORMATION
  Report Type: Spontaneous
  Country: US (occurrence: US)
  Receive Date: 20131008
  Receipt Date: 20131008
  Transmission Date: 20140711
  Serious: No
  Sender: FDA-Public Use
  Company Number: US-AMGEN-USASP2013059939

PATIENT
  Sex: Female

DRUGS (15)
  1. PROLIA [Suspect]
     Indication: OSTEOPOROSIS POSTMENOPAUSAL
     Dosage: UNK
     Route: 065
     Dates: start: 20130514
  2. CALCIUM [Concomitant]
     Route: 065
  3. VITAMIN D3 [Concomitant]
     Route: 065
  4. VITAMIN B COMPLEX [Concomitant]
     Route: 065
  5. SIMVASTATIN [Concomitant]
     Route: 065
  6. OMEPRAZOLE [Concomitant]
     Route: 065
  7. TYLENOL                            /00020001/ [Concomitant]
     Indication: MUSCULOSKELETAL DISCOMFORT
     Route: 065
  8. TRAMADOL                           /00599202/ [Concomitant]
     Indication: MUSCULOSKELETAL DISCOMFORT
     Route: 065
     Dates: start: 2013
  9. FISH OIL [Concomitant]
     Route: 065
  10. VERAPAMIL                          /00014302/ [Concomitant]
     Route: 065
  11. AMLODIPINE [Concomitant]
     Route: 065
  12. BILBERRY                           /01397601/ [Concomitant]
     Route: 065
  13. LEVOTHYROXINE [Concomitant]
     Dosage: 75 MG, UNK
     Route: 065
  14. PRESERVISION [Concomitant]
     Route: 065
  15. ETHYLENE GLYCOL [Concomitant]
     Route: 065

REACTIONS (3)
  - Muscular weakness [Unknown]
  - Paraesthesia [Unknown]
  - Musculoskeletal pain [Unknown]
